FAERS Safety Report 11575841 (Version 2)
Quarter: 2015Q4

REPORT INFORMATION
  Report Type: Report from Study
  Country: US (occurrence: US)
  Receive Date: 20150930
  Receipt Date: 20151021
  Transmission Date: 20160304
  Serious: Yes (Death, Hospitalization)
  Sender: FDA-Public Use
  Company Number: US-MALLINCKRODT-T201504398

PATIENT
  Age: 77 Year
  Sex: Female

DRUGS (1)
  1. REPOSITORY CORTICOTROPIN INJECTION [Suspect]
     Active Substance: CORTICOTROPIN
     Indication: POLYMYOSITIS
     Dosage: 80 UNITS / 1 ML WEEKLY
     Route: 030
     Dates: start: 20150825, end: 20150920

REACTIONS (5)
  - Faecaloma [Recovered/Resolved]
  - Somnolence [Unknown]
  - Haematoma [Unknown]
  - Death [Fatal]
  - Swelling [Unknown]

NARRATIVE: CASE EVENT DATE: 20150827
